FAERS Safety Report 4762929-4 (Version None)
Quarter: 2005Q3

REPORT INFORMATION
  Report Type: 
  Country: None (occurrence: None)
  Receive Date: 20050907
  Receipt Date: 20050901
  Transmission Date: 20060218
  Serious: Yes (Other)
  Sender: FDA-Public Use
  Company Number: PHNU2005DE03031

PATIENT
  Sex: Female
  Weight: 70 kg

DRUGS (2)
  1. LETROZOLE [Concomitant]
     Dosage: 2.5 MG, QD
     Route: 048
     Dates: start: 20040501
  2. PAMIDRONATE DISODIUM [Suspect]
     Indication: METASTASES TO BONE
     Dosage: 90 MG, QMO
     Route: 042
     Dates: start: 20001101

REACTIONS (1)
  - ASEPTIC NECROSIS BONE [None]
